FAERS Safety Report 8488743-4 (Version None)
Quarter: 2012Q3

REPORT INFORMATION
  Report Type: 
  Country: None (occurrence: None)
  Receive Date: 20120705
  Receipt Date: 20120702
  Transmission Date: 20120928
  Serious: Yes (Hospitalization, Other)
  Sender: FDA-Public Use
  Company Number: GB-ROCHE-1027908

PATIENT
  Sex: Female

DRUGS (3)
  1. LUCENTIS [Suspect]
     Indication: AGE-RELATED MACULAR DEGENERATION
     Route: 050
     Dates: start: 20090810
  2. LUCENTIS [Suspect]
     Route: 050
     Dates: start: 20100212
  3. LUCENTIS [Suspect]
     Route: 050
     Dates: start: 20090911

REACTIONS (6)
  - ATRIAL FIBRILLATION [None]
  - MYOCARDIAL INFARCTION [None]
  - ESSENTIAL HYPERTENSION [None]
  - DYSPNOEA [None]
  - LEFT VENTRICULAR FAILURE [None]
  - ATRIAL FLUTTER [None]
